FAERS Safety Report 7716851-1 (Version None)
Quarter: 2011Q3

REPORT INFORMATION
  Report Type: 
  Country: None (occurrence: None)
  Receive Date: 20110829
  Receipt Date: 20110818
  Transmission Date: 20111222
  Serious: Yes (Hospitalization, Other)
  Sender: FDA-Public Use
  Company Number: US-ASTRAZENECA-2011SE49544

PATIENT
  Age: 56 Year
  Sex: Male
  Weight: 108.9 kg

DRUGS (5)
  1. XANAX [Concomitant]
  2. SEROQUEL [Suspect]
     Route: 048
     Dates: start: 20070101
  3. SEROQUEL [Suspect]
     Indication: SLEEP DISORDER
     Route: 048
     Dates: start: 20070101
  4. PROZAC [Concomitant]
     Dates: start: 20070101
  5. DEPAKOTE [Concomitant]
     Dates: start: 20070101

REACTIONS (7)
  - RIB FRACTURE [None]
  - ROAD TRAFFIC ACCIDENT [None]
  - NECK INJURY [None]
  - DEAFNESS UNILATERAL [None]
  - EYE INJURY [None]
  - LOWER LIMB FRACTURE [None]
  - INTERNAL FIXATION OF FRACTURE [None]
